FAERS Safety Report 5399318-8 (Version None)
Quarter: 2007Q3

REPORT INFORMATION
  Report Type: 
  Country: None (occurrence: None)
  Receive Date: 20070727
  Receipt Date: 20070718
  Transmission Date: 20080115
  Serious: Yes (Hospitalization)
  Sender: FDA-Public Use
  Company Number: JP-ASTRAZENECA-2007AP03744

PATIENT
  Age: 674 Month
  Sex: Female

DRUGS (1)
  1. NOLVADEX [Suspect]
     Indication: BREAST CANCER
     Route: 048
     Dates: start: 20060814, end: 20070507

REACTIONS (5)
  - DERMATITIS [None]
  - DERMATITIS ALLERGIC [None]
  - DIARRHOEA [None]
  - MALAISE [None]
  - PYREXIA [None]
